APPROVED DRUG PRODUCT: CLOBETASOL PROPIONATE
Active Ingredient: CLOBETASOL PROPIONATE
Strength: 0.05%
Dosage Form/Route: SHAMPOO;TOPICAL
Application: A213290 | Product #001 | TE Code: AB
Applicant: ALEMBIC PHARMACEUTICALS LTD
Approved: May 18, 2020 | RLD: No | RS: No | Type: RX